FAERS Safety Report 8382045-2 (Version None)
Quarter: 2012Q2

REPORT INFORMATION
  Report Type: 
  Country: None (occurrence: None)
  Receive Date: 20120523
  Receipt Date: 20120523
  Transmission Date: 20120825
  Serious: Yes (Hospitalization)
  Sender: FDA-Public Use
  Company Number: None

PATIENT
  Sex: Male
  Weight: 64 kg

DRUGS (4)
  1. DIPHENHYDRAMINE HCL [Concomitant]
  2. METHYLPREDNISOLONE [Concomitant]
  3. EPINEPHRINE [Concomitant]
  4. LISINOPRIL [Suspect]
     Indication: HYPERTENSION
     Dosage: 10 MG DAILY INJ

REACTIONS (2)
  - DYSPHAGIA [None]
  - ANGIOEDEMA [None]
